FAERS Safety Report 6475905-0 (Version None)
Quarter: 2009Q4

REPORT INFORMATION
  Report Type: 
  Country: None (occurrence: None)
  Receive Date: 20091204
  Receipt Date: 20091119
  Transmission Date: 20100525
  Serious: Yes (Hospitalization)
  Sender: FDA-Public Use
  Company Number: FR-GENENTECH-294826

PATIENT
  Sex: Female

DRUGS (3)
  1. AVASTIN [Suspect]
     Indication: VENOUS THROMBOSIS
     Dosage: 0.041 MG, 1/MONTH
     Route: 031
     Dates: start: 20090420, end: 20090615
  2. TETRACAINE POLYGYL STERILE OPHTHALMIC SOLUTION [Concomitant]
     Indication: DRUG USE FOR UNKNOWN INDICATION
     Dosage: UNK
     Dates: start: 20090420, end: 20090615
  3. BETADINE [Concomitant]
     Indication: DRUG USE FOR UNKNOWN INDICATION
     Dosage: UNK
     Dates: start: 20090420, end: 20090615

REACTIONS (1)
  - ENDOPHTHALMITIS [None]
